FAERS Safety Report 13777499 (Version 1)
Quarter: 2017Q3

REPORT INFORMATION
  Report Type: Spontaneous
  Country: US (occurrence: US)
  Receive Date: 20170721
  Receipt Date: 20170721
  Transmission Date: 20171127
  Serious: No
  Sender: FDA-Public Use
  Company Number: US-BAUSCH-BL-2016-031631

PATIENT
  Age: 85 Year
  Sex: Male

DRUGS (3)
  1. BRIMONIDINE TARTRATE OPHTHALMIC SOLUTION 0.2% [Suspect]
     Active Substance: BRIMONIDINE TARTRATE
     Indication: INTRAOCULAR PRESSURE INCREASED
     Dosage: IN THE RIGHT EYE?ONE DROP IN RIGHT EYE TWO TIMES DAILY
     Route: 047
  2. TIMOLOL. [Concomitant]
     Active Substance: TIMOLOL
     Indication: PRODUCT USED FOR UNKNOWN INDICATION
     Dosage: ONE DROP IN BOTH EYES TWO TIMES DAILY
     Route: 047
  3. REFRESH TEARS [Concomitant]
     Active Substance: CARBOXYMETHYLCELLULOSE SODIUM
     Indication: DRY EYE
     Route: 047

REACTIONS (5)
  - Eye infection [Recovering/Resolving]
  - Eye pain [Unknown]
  - Eye disorder [Unknown]
  - Lacrimation increased [Unknown]
  - Strabismus [Unknown]

NARRATIVE: CASE EVENT DATE: 20161122
